FAERS Safety Report 9367252 (Version 1)
Quarter: 2013Q2

REPORT INFORMATION
  Report Type: Spontaneous
  Country: US (occurrence: US)
  Receive Date: 20130625
  Receipt Date: 20130625
  Transmission Date: 20140414
  Serious: No
  Sender: FDA-Public Use
  Company Number: US-ASTELLAS-2012US006058

PATIENT
  Sex: Female
  Weight: 57 kg

DRUGS (20)
  1. VESICARE [Suspect]
     Indication: HYPERTONIC BLADDER
     Dosage: 5 MG, UID/QD
     Route: 048
  2. VESICARE [Suspect]
     Dosage: 10 MG, UID/QD
     Route: 048
  3. VENTOLIN                           /00139501/ [Concomitant]
     Indication: DYSPNOEA
     Dosage: 2 PUFFS EVERY 4-6 HOURS, PRN
     Route: 055
  4. VENTOLIN                           /00139501/ [Concomitant]
     Indication: WHEEZING
  5. CETRIZINE [Concomitant]
     Indication: PRODUCT USED FOR UNKNOWN INDICATION
     Dosage: 10 MG, UID/QD
     Route: 048
  6. CLONAZEPAM [Concomitant]
     Indication: PRODUCT USED FOR UNKNOWN INDICATION
     Dosage: 1 TABLET TWICE A DAY AND 3 TABLETS AT BEDTIME
     Route: 048
  7. NIGHTTIME COLD AND FLU RELIEF [Concomitant]
     Indication: PRODUCT USED FOR UNKNOWN INDICATION
     Dosage: 1-2 TABS
     Route: 048
  8. NEXIUM                             /01479302/ [Concomitant]
     Indication: PRODUCT USED FOR UNKNOWN INDICATION
     Dosage: 40 MG, BID
     Route: 048
  9. GABAPENTIN [Concomitant]
     Indication: PRODUCT USED FOR UNKNOWN INDICATION
     Dosage: 1 TAB BID, 3 TABS AT BEDTIME
     Route: 048
  10. HYDROCODONE W/ACETAMINOPHEN [Concomitant]
     Indication: PAIN
     Dosage: 1 TABLET EVERY 12 HOURS, PRN
     Route: 048
  11. INTERFERON BETA-1A [Concomitant]
     Indication: PRODUCT USED FOR UNKNOWN INDICATION
     Dosage: 44 UG, UNKNOWN/D
     Route: 058
  12. LORAZEPAM [Concomitant]
     Indication: NAUSEA
     Dosage: 1 TAB BID AND 2 AT BEDTIME AS NEEDED
     Route: 048
  13. METAXALONE [Concomitant]
     Indication: PRODUCT USED FOR UNKNOWN INDICATION
     Dosage: 1 TAB BID AND 2 AT BEDTIME AS NEEDED
     Route: 048
  14. SINGULAIR [Concomitant]
     Indication: PRODUCT USED FOR UNKNOWN INDICATION
     Dosage: 10 MG, UID/QD
     Route: 048
  15. MULTIVITAMIN                       /00097801/ [Concomitant]
     Indication: PRODUCT USED FOR UNKNOWN INDICATION
     Dosage: 1 DF, UID/QD
     Route: 048
  16. MICROGESTIN [Concomitant]
     Indication: PRODUCT USED FOR UNKNOWN INDICATION
     Dosage: 1 DF, UID/QD
     Route: 048
  17. ONDANSETRAN [Concomitant]
     Indication: NAUSEA
     Dosage: 8 MG, Q12 HOURS
     Route: 048
  18. TOPIRAMATE [Concomitant]
     Indication: PRODUCT USED FOR UNKNOWN INDICATION
     Dosage: 250 MG, UID/QD
     Route: 048
  19. RYBIX [Concomitant]
     Indication: PAIN
     Dosage: 1 - 2 TABS UP TO TID AS NEEDED
     Route: 048
  20. ZOLPIDEM [Concomitant]
     Indication: INSOMNIA
     Dosage: 2 TABS AT BEDTIME
     Route: 048

REACTIONS (1)
  - Drug ineffective [Recovering/Resolving]
